FAERS Safety Report 12146252 (Version 1)
Quarter: 2016Q1

REPORT INFORMATION
  Report Type: Spontaneous
  Country: US (occurrence: US)
  Receive Date: 20160304
  Receipt Date: 20160304
  Transmission Date: 20160526
  Serious: No
  Sender: FDA-Public Use
  Company Number: US-PERRIGO-16US000031

PATIENT
  Age: 17 Year
  Sex: Female
  Weight: 108.84 kg

DRUGS (3)
  1. NAPROXEN SODIUM 220 MG 490 [Suspect]
     Active Substance: NAPROXEN SODIUM
     Indication: PAIN IN JAW
     Dosage: 440 MG, SINGLE
     Route: 048
     Dates: start: 20151223, end: 20151223
  2. NAPROXEN SODIUM 220 MG 490 [Suspect]
     Active Substance: NAPROXEN SODIUM
     Indication: PAIN
     Dosage: AS DIRECTED, PRN
     Route: 048
     Dates: start: 2015, end: 2015
  3. NAPROXEN SODIUM 220 MG 490 [Suspect]
     Active Substance: NAPROXEN SODIUM
     Dosage: 220 MG, QD
     Route: 048
     Dates: start: 20151224, end: 20160101

REACTIONS (7)
  - Malaise [Not Recovered/Not Resolved]
  - Chills [Not Recovered/Not Resolved]
  - Nausea [Not Recovered/Not Resolved]
  - Headache [Not Recovered/Not Resolved]
  - Abdominal pain upper [Not Recovered/Not Resolved]
  - Expired product administered [Recovered/Resolved]
  - Vomiting [Recovered/Resolved]

NARRATIVE: CASE EVENT DATE: 20151223
